FAERS Safety Report 9048301 (Version 2)
Quarter: 2014Q1

REPORT INFORMATION
  Report Type: Spontaneous
  Country: US (occurrence: US)
  Receive Date: 20130204
  Receipt Date: 20140227
  Transmission Date: 20141002
  Serious: No
  Sender: FDA-Public Use
  Company Number: US-AMGEN-USASP2013001611

PATIENT
  Age: 55 Year
  Sex: Male

DRUGS (2)
  1. ENBREL [Suspect]
     Indication: PSORIATIC ARTHROPATHY
     Dosage: 50 MG, QWK
     Route: 065
     Dates: start: 20050822
  2. ENBREL [Suspect]
     Indication: PSORIASIS
     Route: 065

REACTIONS (9)
  - Gingival recession [Not Recovered/Not Resolved]
  - Laceration [Recovered/Resolved]
  - Thermal burn [Recovered/Resolved]
  - Impaired healing [Recovered/Resolved]
  - Drug effect incomplete [Not Recovered/Not Resolved]
  - Tooth disorder [Recovered/Resolved]
  - Gingival inflammation [Recovered/Resolved]
  - Nasopharyngitis [Not Recovered/Not Resolved]
  - Psoriasis [Not Recovered/Not Resolved]
